FAERS Safety Report 6937431-1 (Version None)
Quarter: 2010Q3

REPORT INFORMATION
  Report Type: 
  Country: None (occurrence: None)
  Receive Date: 20100823
  Receipt Date: 20100812
  Transmission Date: 20110219
  Serious: Yes (Hospitalization)
  Sender: FDA-Public Use
  Company Number: LT-ROCHE-609719

PATIENT
  Sex: Female
  Weight: 108 kg

DRUGS (18)
  1. TOCILIZUMAB [Suspect]
     Indication: RHEUMATOID ARTHRITIS
     Dosage: DOSAGE FORM : INFUSION, LAST DOSE PRIOR TO EVENT: 30 SEPTEMBER 2009
     Route: 042
     Dates: start: 20070124
  2. TOCILIZUMAB [Suspect]
     Route: 042
     Dates: start: 20090930
  3. TOCILIZUMAB [Suspect]
     Route: 042
     Dates: start: 20091005
  4. TOCILIZUMAB [Suspect]
     Route: 042
     Dates: start: 20091027
  5. TOCILIZUMAB [Suspect]
     Route: 042
     Dates: start: 20100803
  6. TOCILIZUMAB [Suspect]
     Dosage: THE PATIENT HAVE ALREADY COMPLETED A DOUBLE-BLINDED MRA CORE STUDY (WA17824).
     Route: 042
  7. QUINAPRILUM [Concomitant]
     Dates: start: 20060701
  8. QUINAPRILUM [Concomitant]
     Dates: start: 20081202, end: 20090112
  9. RANIDINE [Concomitant]
     Dosage: DRUG: RANITIDINUM.
     Dates: start: 20061227
  10. TORASEMIDUM [Concomitant]
     Dates: start: 20090122
  11. VALSARTANUM [Concomitant]
     Dates: start: 20090506
  12. RANITIDINE [Concomitant]
     Route: 048
     Dates: start: 20061227
  13. METHYLPREDNISOLONUM [Concomitant]
     Dates: start: 20020101
  14. DICLOFENAC [Concomitant]
     Dates: start: 20020101
  15. ASPIRIN [Concomitant]
     Dosage: DRUG NAME REPORTED: ACETYLSALICYLIUM
     Dates: start: 20090122
  16. LERCANIDIPINUM [Concomitant]
     Dates: start: 20091021
  17. SPIRONOLACTONUM [Concomitant]
     Dates: start: 20091021
  18. MELOXICAMUM [Concomitant]
     Dates: start: 20100318

REACTIONS (3)
  - ANGINA PECTORIS [None]
  - CARDIAC FAILURE [None]
  - HYPERTENSION [None]
